FAERS Safety Report 20138298 (Version 3)
Quarter: 2022Q1

REPORT INFORMATION
  Report Type: Report from Study
  Country: US (occurrence: US)
  Receive Date: 20211202
  Receipt Date: 20220315
  Transmission Date: 20220423
  Serious: Yes (Other)
  Sender: FDA-Public Use
  Company Number: US-BIOVITRUM-2021US2209

PATIENT
  Age: 48 Year
  Sex: Male

DRUGS (2)
  1. KINERET [Suspect]
     Active Substance: ANAKINRA
     Indication: Urticaria
     Route: 058
     Dates: start: 20210209
  2. KINERET [Suspect]
     Active Substance: ANAKINRA
     Route: 058

REACTIONS (12)
  - Coccidioidomycosis [Unknown]
  - Neuralgia [Unknown]
  - Fatigue [Unknown]
  - Abdominal pain upper [Unknown]
  - Swelling [Unknown]
  - Musculoskeletal stiffness [Unknown]
  - Arthralgia [Unknown]
  - Middle lobe syndrome [Unknown]
  - Fungal infection [Unknown]
  - Illness [Unknown]
  - Product dose omission issue [Unknown]
  - Off label use [Not Recovered/Not Resolved]

NARRATIVE: CASE EVENT DATE: 20210209
